FAERS Safety Report 4862159-1 (Version None)
Quarter: 2005Q4

REPORT INFORMATION
  Report Type: 
  Country: None (occurrence: None)
  Receive Date: 20051130
  Receipt Date: 20041118
  Transmission Date: 20060501
  Serious: Yes (Hospitalization)
  Sender: FDA-Public Use
  Company Number: SUS1-2004-00758

PATIENT
  Age: 59 Year
  Sex: Female

DRUGS (1)
  1. CARBATROL [Suspect]
     Indication: EPILEPSY
     Dosage: 200 MG,4 PILLS IN AM, 5 IN PM
     Dates: end: 20041101

REACTIONS (1)
  - RENAL FAILURE ACUTE [None]
